FAERS Safety Report 5286996-7 (Version None)
Quarter: 2007Q2

REPORT INFORMATION
  Report Type: 
  Country: None (occurrence: None)
  Receive Date: 20070404
  Receipt Date: 20070328
  Transmission Date: 20071010
  Serious: Yes (Other)
  Sender: FDA-Public Use
  Company Number: JP-PFIZER INC-2007025700

PATIENT
  Age: 50 Year
  Sex: Male

DRUGS (2)
  1. HALCION [Suspect]
     Indication: INSOMNIA
     Dosage: DAILY DOSE:.25MG
     Route: 048
  2. ALCOHOL [Suspect]

REACTIONS (2)
  - AMNESIA [None]
  - ROAD TRAFFIC ACCIDENT [None]
